FAERS Safety Report 8828816 (Version 3)
Quarter: 2014Q2

REPORT INFORMATION
  Report Type: Spontaneous
  Country: US (occurrence: US)
  Receive Date: 20121009
  Receipt Date: 20140508
  Transmission Date: 20141212
  Serious: Yes (Hospitalization)
  Sender: FDA-Public Use
  Company Number: US-BAYER-2012-104111

PATIENT
  Age: 28 Year
  Sex: Female
  Weight: 93 kg

DRUGS (3)
  1. OCELLA [Suspect]
     Dosage: UNK
     Dates: start: 2008, end: 2012
  2. YAZ [Suspect]
     Dosage: UNK
     Dates: start: 20080401, end: 20120327
  3. YASMIN [Suspect]
     Dosage: UNK
     Dates: start: 20080401, end: 20120327

REACTIONS (10)
  - Cholecystectomy [None]
  - Cholecystitis acute [None]
  - Thrombosis [None]
  - Pain [None]
  - Injury [None]
  - General physical health deterioration [None]
  - Anxiety [None]
  - Anhedonia [None]
  - Emotional distress [None]
  - Pain [None]
